FAERS Safety Report 5221064-1 (Version None)
Quarter: 2007Q1

REPORT INFORMATION
  Report Type: 
  Country: None (occurrence: None)
  Receive Date: 20070123
  Receipt Date: 20070111
  Transmission Date: 20070707
  Serious: Yes (Other)
  Sender: FDA-Public Use
  Company Number: 234939

PATIENT
  Sex: Female

DRUGS (1)
  1. RITUXAN [Suspect]
     Indication: RHEUMATOID ARTHRITIS
     Dosage: 1000 MG, Q14D, INTRAVENOUS
     Route: 042
     Dates: start: 20061222

REACTIONS (4)
  - EYE PAIN [None]
  - HEADACHE [None]
  - PHOTOPSIA [None]
  - RETINAL DETACHMENT [None]
